FAERS Safety Report 25957999 (Version 2)
Quarter: 2025Q4

REPORT INFORMATION
  Report Type: Report from Study
  Country: EG (occurrence: EG)
  Receive Date: 20251024
  Receipt Date: 20251029
  Transmission Date: 20260118
  Serious: Yes (Hospitalization, Other)
  Sender: NOVARTIS
  Company Number: EG-002147023-NVSC2025EG159741

PATIENT
  Age: 40 Year
  Sex: Female
  Weight: 72 kg

DRUGS (4)
  1. MAYZENT [Suspect]
     Active Substance: SIPONIMOD
     Indication: Multiple sclerosis
     Dosage: 1 DOSAGE FORM, QD (STARTED 2 YEARS AGO)
     Route: 048
  2. GILENYA [Suspect]
     Active Substance: FINGOLIMOD HYDROCHLORIDE
     Indication: Multiple sclerosis
     Dosage: 0.5 MG, QD
     Route: 048
  3. VITAMIN C [Concomitant]
     Active Substance: ASCORBIC ACID
     Indication: Supplementation therapy
     Dosage: 00 MG (TABLET, START DATE: SINCE BEEN DIAGNOSED WITH MS), QD
     Route: 048
  4. VITAMIN D NOS [Concomitant]
     Active Substance: CHOLECALCIFEROL\ERGOCALCIFEROL
     Indication: Supplementation therapy
     Dosage: 00 MG (TABLET, START DATE: SINCE BEING DIAGNOSED WITH MS), QD
     Route: 048

REACTIONS (11)
  - Multiple sclerosis relapse [Not Recovered/Not Resolved]
  - Musculoskeletal stiffness [Not Recovered/Not Resolved]
  - Gait inability [Not Recovered/Not Resolved]
  - Amnesia [Recovering/Resolving]
  - Limb discomfort [Unknown]
  - Hemiparesis [Not Recovered/Not Resolved]
  - Mental disorder [Recovering/Resolving]
  - Decreased immune responsiveness [Not Recovered/Not Resolved]
  - Drug ineffective [Not Recovered/Not Resolved]
  - Drug tolerance [Unknown]
  - Stress [Unknown]

NARRATIVE: CASE EVENT DATE: 20250701
